FAERS Safety Report 9492438 (Version 1)
Quarter: 2013Q3

REPORT INFORMATION
  Report Type: Spontaneous
  Country: US (occurrence: US)
  Receive Date: 20130830
  Receipt Date: 20130830
  Transmission Date: 20140515
  Serious: Yes (Other)
  Sender: FDA-Public Use
  Company Number: CHPA2013US013526

PATIENT
  Age: 84 Year
  Sex: Female

DRUGS (2)
  1. ASCRIPTIN BUFFERED REG STRENGTH TABLETS [Suspect]
     Indication: ARTHRITIS
     Dosage: 1 DF, QD
     Route: 048
  2. ASCRIPTIN BUFFERED REG STRENGTH TABLETS [Suspect]
     Indication: CARDIAC DISORDER
     Dosage: 3 DF, QD
     Route: 048

REACTIONS (5)
  - Cardiac murmur [Not Recovered/Not Resolved]
  - Cataract [Recovered/Resolved]
  - Underdose [Unknown]
  - Off label use [Unknown]
  - Incorrect drug administration duration [Unknown]
